FAERS Safety Report 6733785-X (Version None)
Quarter: 2010Q2

REPORT INFORMATION
  Report Type: 
  Country: None (occurrence: None)
  Receive Date: 20100520
  Receipt Date: 20100520
  Transmission Date: 20101027
  Serious: Yes (Life-Threatening)
  Sender: FDA-Public Use
  Company Number: None

PATIENT
  Age: 3 Year
  Sex: Female

DRUGS (1)
  1. CHILDREN'S VERY BERRY STRAWBERRY LIQUID TYLENOL [Suspect]
     Dates: end: 20091014

REACTIONS (4)
  - DYSPNOEA [None]
  - GENERALISED OEDEMA [None]
  - PRODUCT QUALITY ISSUE [None]
  - URTICARIA [None]
